FAERS Safety Report 20556228 (Version 1)
Quarter: 2022Q1

REPORT INFORMATION
  Report Type: Spontaneous
  Country: None (occurrence: DE)
  Receive Date: 20220305
  Receipt Date: 20220305
  Transmission Date: 20220423
  Serious: Yes (Other)
  Sender: FDA-Public Use
  Company Number: DE-Ascend Therapeutics US, LLC-2126479

PATIENT
  Sex: Female

DRUGS (7)
  1. ESTROGEL [Suspect]
     Active Substance: ESTRADIOL
     Indication: Fibromyalgia
     Route: 065
  2. ESTROGEL [Suspect]
     Active Substance: ESTRADIOL
  3. PROGESTERONE [Suspect]
     Active Substance: PROGESTERONE
     Route: 048
  4. PROGESTERONE [Suspect]
     Active Substance: PROGESTERONE
     Route: 067
  5. PROGESTERONE [Suspect]
     Active Substance: PROGESTERONE
     Route: 048
  6. PROGESTERONE [Suspect]
     Active Substance: PROGESTERONE
     Route: 050
  7. ESTRADIOL HEMIHYDRATE [Suspect]
     Active Substance: ESTRADIOL HEMIHYDRATE
     Route: 065

REACTIONS (18)
  - Hysterectomy [Unknown]
  - Hormone level abnormal [Unknown]
  - Memory impairment [Unknown]
  - Pain [Unknown]
  - Fine motor skill dysfunction [Unknown]
  - Asthenia [Unknown]
  - General physical health deterioration [Unknown]
  - Myalgia [Unknown]
  - Mucosal disorder [Unknown]
  - Movement disorder [Unknown]
  - Listless [Unknown]
  - Vulvovaginal burning sensation [Unknown]
  - Vulvovaginal dryness [Unknown]
  - Vulvovaginal pruritus [Recovered/Resolved]
  - Vulvovaginitis allergic [Unknown]
  - Hypersensitivity [Unknown]
  - Off label use [None]
  - Wrong technique in product usage process [None]
